FAERS Safety Report 6144232-3 (Version None)
Quarter: 2009Q2

REPORT INFORMATION
  Report Type: 
  Country: None (occurrence: None)
  Receive Date: 20090406
  Receipt Date: 20090406
  Transmission Date: 20091009
  Serious: Yes (Hospitalization)
  Sender: FDA-Public Use
  Company Number: PHHO2004FR13918

PATIENT
  Sex: Female
  Weight: 52 kg

DRUGS (2)
  1. CGS 20267 T30748+ [Suspect]
     Indication: BREAST CANCER
     Dosage: 2.5 MG, QD-2 YEARS
     Route: 048
     Dates: start: 20000813
  2. TAMOXIFEN CITRATE [Suspect]
     Dosage: 20 MG, QD

REACTIONS (2)
  - ENDOCERVICAL CURETTAGE [None]
  - UTERINE POLYP [None]
